FAERS Safety Report 6018212-2 (Version None)
Quarter: 2008Q4

REPORT INFORMATION
  Report Type: 
  Country: None (occurrence: None)
  Receive Date: 20081223
  Receipt Date: 20081215
  Transmission Date: 20090506
  Serious: Yes (Other)
  Sender: FDA-Public Use
  Company Number: PHHY2008BR32110

PATIENT
  Sex: Male
  Weight: 86 kg

DRUGS (1)
  1. FLOTAC [Suspect]
     Dosage: 1 TABLET
     Route: 048
     Dates: start: 20081215

REACTIONS (6)
  - BLOOD PRESSURE DECREASED [None]
  - DYSPHAGIA [None]
  - DYSPNOEA [None]
  - FALL [None]
  - HYPERSENSITIVITY [None]
  - THROAT TIGHTNESS [None]
